FAERS Safety Report 21798099 (Version 1)
Quarter: 2022Q4

REPORT INFORMATION
  Report Type: Spontaneous
  Country: US (occurrence: US)
  Receive Date: 20221230
  Receipt Date: 20221230
  Transmission Date: 20230112
  Serious: No
  Sender: FDA-Public Use
  Company Number: US-SA-SAC20221229000163

PATIENT
  Age: 48 Year
  Sex: Female
  Weight: 124 kg

DRUGS (19)
  1. DUPIXENT [Suspect]
     Active Substance: DUPILUMAB
     Indication: Asthma
     Dosage: 300 MG, QOW
     Route: 058
     Dates: start: 20221219
  2. PREVNAR 20 [Concomitant]
     Active Substance: STREPTOCOCCUS PNEUMONIAE TYPE 1 CAPSULAR POLYSACCHARIDE DIPHTHERIA CRM197 PROTEIN CONJUGATE ANTIGEN\
     Dosage: 20 0.5 ML SYRINGE
  3. DEVICE [Concomitant]
     Active Substance: DEVICE
     Dosage: 88MG/4ML
  4. ATROVENT HFA [Concomitant]
     Active Substance: IPRATROPIUM BROMIDE
     Dosage: 17MCG
  5. TRAMADOL HCL [Concomitant]
     Active Substance: TRAMADOL HYDROCHLORIDE
  6. TYLENOL [Concomitant]
     Active Substance: ACETAMINOPHEN
  7. ADVIL [Concomitant]
     Active Substance: IBUPROFEN
  8. CLARITIN [Concomitant]
     Active Substance: LORATADINE
  9. SPIRIVA RESPIMAT [Concomitant]
     Active Substance: TIOTROPIUM BROMIDE
  10. QVAR REDIHALER [Concomitant]
     Active Substance: BECLOMETHASONE DIPROPIONATE
     Dosage: 80MCG
  11. ZINC [Concomitant]
     Active Substance: ZINC
     Dosage: 90MG- 15MG
  12. VITAMIN C [Concomitant]
     Active Substance: ASCORBIC ACID
  13. VITAMIN D3 [Concomitant]
     Active Substance: CHOLECALCIFEROL
     Dosage: 10MCG
  14. ASPIRIN [Concomitant]
     Active Substance: ASPIRIN
     Dosage: 81 MG TAB CHEW
  15. CYANOCOBALAMIN [Concomitant]
     Active Substance: CYANOCOBALAMIN
     Dosage: 2500MCG
  16. CARDIZEM CD [Concomitant]
     Active Substance: DILTIAZEM HYDROCHLORIDE
     Dosage: 120 MG CAP.SR 24H
  17. SINGULAIR [Concomitant]
     Active Substance: MONTELUKAST SODIUM
  18. BENICAR [Concomitant]
     Active Substance: OLMESARTAN MEDOXOMIL
  19. EPINEPHRINE [Concomitant]
     Active Substance: EPINEPHRINE
     Dosage: AUVI-Q 0.3MG/0.3 AUTO INJCT

REACTIONS (6)
  - Sinus congestion [Not Recovered/Not Resolved]
  - Cough [Recovering/Resolving]
  - Arthritis [Not Recovered/Not Resolved]
  - Condition aggravated [Not Recovered/Not Resolved]
  - Headache [Recovered/Resolved]
  - Arthralgia [Recovered/Resolved]

NARRATIVE: CASE EVENT DATE: 20221219
